FAERS Safety Report 10274250 (Version 5)
Quarter: 2015Q1

REPORT INFORMATION
  Report Type: Spontaneous
  Country: US (occurrence: US)
  Receive Date: 20140702
  Receipt Date: 20150318
  Transmission Date: 20150720
  Serious: Yes (Other)
  Sender: FDA-Public Use
  Company Number: US-PFIZER INC-2014174657

PATIENT
  Age: 66 Year
  Sex: Female
  Weight: 54 kg

DRUGS (11)
  1. SUTENT [Suspect]
     Active Substance: SUNITINIB MALATE
     Dosage: 25 MG, DAILY (FOR 1 WEEK ON OR AROUND 07AUG2014)
     Dates: start: 2014, end: 2014
  2. LEVOTHYROXINE [Concomitant]
     Active Substance: LEVOTHYROXINE
     Dosage: UNK
  3. SUTENT [Suspect]
     Active Substance: SUNITINIB MALATE
     Dosage: 12.5 MG, DAILY
     Dates: start: 2014, end: 20141021
  4. CO-ENZIME Q-10 [Concomitant]
     Dosage: UNK
  5. PILOCARPINE [Concomitant]
     Active Substance: PILOCARPINE
     Dosage: UNK
  6. SPIRONOLACTONE. [Concomitant]
     Active Substance: SPIRONOLACTONE
     Dosage: UNK
  7. SUTENT [Suspect]
     Active Substance: SUNITINIB MALATE
     Indication: SALIVARY GLAND CANCER
     Dosage: 37.5 MG, DAILY CONTINUOUS
     Dates: start: 201405, end: 20140707
  8. SALAGEN [Concomitant]
     Active Substance: PILOCARPINE HYDROCHLORIDE
     Dosage: UNK
  9. ATORVASTATIN [Concomitant]
     Active Substance: ATORVASTATIN
     Dosage: UNK
  10. SUTENT [Suspect]
     Active Substance: SUNITINIB MALATE
     Dosage: 12.5 MG, DAILY (FOR ONE WEEK ON OR AROUND 30JUL2014)
     Dates: start: 2014, end: 2014
  11. ZYRTEC [Concomitant]
     Active Substance: CETIRIZINE HYDROCHLORIDE
     Dosage: UNK

REACTIONS (23)
  - Dysgeusia [Recovered/Resolved]
  - Neuropathy peripheral [Not Recovered/Not Resolved]
  - Swollen tongue [Unknown]
  - Hepatic enzyme abnormal [Recovered/Resolved]
  - Fatigue [Recovered/Resolved]
  - Dry mouth [Recovered/Resolved]
  - Decreased appetite [Recovered/Resolved]
  - Platelet count decreased [Recovered/Resolved]
  - Weight decreased [Not Recovered/Not Resolved]
  - Salivary gland cancer [Unknown]
  - Trismus [Recovered/Resolved]
  - White blood cell count decreased [Recovered/Resolved]
  - Blister [Unknown]
  - Osteonecrosis of jaw [Not Recovered/Not Resolved]
  - Constipation [Not Recovered/Not Resolved]
  - Disease progression [Not Recovered/Not Resolved]
  - Recall phenomenon [Recovered/Resolved]
  - Stomatitis [Recovered/Resolved]
  - Diarrhoea [Not Recovered/Not Resolved]
  - Oral pain [Recovered/Resolved]
  - Abdominal discomfort [Not Recovered/Not Resolved]
  - Tongue disorder [Unknown]
  - Product use issue [Recovered/Resolved]

NARRATIVE: CASE EVENT DATE: 201406
